FAERS Safety Report 6329585-5 (Version None)
Quarter: 2009Q3

REPORT INFORMATION
  Report Type: 
  Country: None (occurrence: None)
  Receive Date: 20090825
  Receipt Date: 20090825
  Transmission Date: 20100115
  Serious: Yes (Life-Threatening)
  Sender: FDA-Public Use
  Company Number: None

PATIENT
  Age: 79 Year
  Sex: Male
  Weight: 77.1115 kg

DRUGS (22)
  1. LOVENOX [Suspect]
     Indication: THROMBOSIS PROPHYLAXIS
     Dates: start: 20090817, end: 20090819
  2. FLOMAX [Concomitant]
  3. NAMENDA [Concomitant]
  4. ZYPREXA [Concomitant]
  5. M.V.I. [Concomitant]
  6. ASPIRIN [Concomitant]
  7. LITHIUM CARBONATE [Concomitant]
  8. METOPROLOL [Concomitant]
  9. LISINOPRIL [Concomitant]
  10. OMEMPRAZOLE [Concomitant]
  11. HALDOL [Concomitant]
  12. PYRIDOXINE [Concomitant]
  13. ROCEPHIN [Concomitant]
  14. ZITHROMAX [Concomitant]
  15. TYLENOL (CAPLET) [Concomitant]
  16. MILK OF MAGNESIA TAB [Concomitant]
  17. MYLANTA [Concomitant]
  18. ZOVIRAX [Concomitant]
  19. DUONEB [Concomitant]
  20. LACTINEX [Concomitant]
  21. SENOKOT [Concomitant]
  22. DULCOLAX [Concomitant]

REACTIONS (1)
  - THROMBOCYTOPENIA [None]
